FAERS Safety Report 4404326-7 (Version None)
Quarter: 2004Q3

REPORT INFORMATION
  Report Type: 
  Country: None (occurrence: None)
  Receive Date: 20040719
  Receipt Date: 20040706
  Transmission Date: 20050211
  Serious: Yes (Other)
  Sender: FDA-Public Use
  Company Number: JP-JNJFOC-20040701605

PATIENT

DRUGS (2)
  1. INFLIXIMAB (INFLIXIMAB, RECOMBINANT) LYOPHILIZED POWDER [Suspect]
     Indication: BEHCET'S SYNDROME
     Dosage: 10 MG/KG, 1 IN 1 DAY, INTRAVENOUS
     Route: 042
  2. INFLIXIMAB (INFLIXIMAB, RECOMBINANT) LYOPHILIZED POWDER [Suspect]
     Indication: RETINITIS
     Dosage: 10 MG/KG, 1 IN 1 DAY, INTRAVENOUS
     Route: 042

REACTIONS (3)
  - CSF CULTURE POSITIVE [None]
  - GASTROINTESTINAL INFECTION [None]
  - TUBERCULOSIS [None]
